FAERS Safety Report 7663986-8 (Version None)
Quarter: 2011Q3

REPORT INFORMATION
  Report Type: 
  Country: None (occurrence: None)
  Receive Date: 20110805
  Receipt Date: 20100904
  Transmission Date: 20111222
  Serious: No
  Sender: FDA-Public Use
  Company Number: US-ABBOTT-10P-163-0669043-00

PATIENT

DRUGS (1)
  1. NIASPAN [Suspect]
     Indication: HYPERCHOLESTEROLAEMIA
     Dosage: 500 MG DAILY
     Route: 048
     Dates: start: 20100703

REACTIONS (3)
  - FLUSHING [None]
  - CHEST PAIN [None]
  - SKIN BURNING SENSATION [None]
